FAERS Safety Report 24372402 (Version 1)
Quarter: 2024Q3

REPORT INFORMATION
  Report Type: Spontaneous
  Country: FR (occurrence: FR)
  Receive Date: 20240927
  Receipt Date: 20240927
  Transmission Date: 20241017
  Serious: Yes (Hospitalization)
  Sender: RANBAXY
  Company Number: FR-SUN PHARMACEUTICAL INDUSTRIES LTD-2024RR-470065

PATIENT
  Age: 23 Year
  Sex: Male

DRUGS (7)
  1. PANTOPRAZOLE [Suspect]
     Active Substance: PANTOPRAZOLE
     Indication: Wrong patient received product
     Dosage: 20 MILLIGRAM
     Route: 048
     Dates: start: 20240611, end: 20240611
  2. RISPERIDONE [Suspect]
     Active Substance: RISPERIDONE
     Indication: Wrong patient received product
     Dosage: 6 MILLIGRAM
     Route: 048
     Dates: start: 20240611, end: 20240611
  3. LOXAPINE [Suspect]
     Active Substance: LOXAPINE
     Indication: Wrong patient received product
     Dosage: 50 MILLIGRAM
     Route: 048
     Dates: start: 20240611, end: 20240611
  4. POLYETHYLENE GLYCOLS [Suspect]
     Active Substance: POLYETHYLENE GLYCOLS
     Indication: Wrong patient received product
     Dosage: 20 GRAM
     Route: 048
     Dates: start: 20240611, end: 20240611
  5. ZUCLOPENTHIXOL [Suspect]
     Active Substance: ZUCLOPENTHIXOL
     Indication: Wrong patient received product
     Dosage: 35 MILLIGRAM
     Route: 048
     Dates: start: 20240611, end: 20240611
  6. AUGMENTIN [Suspect]
     Active Substance: AMOXICILLIN\CLAVULANATE POTASSIUM
     Indication: Wrong patient received product
     Dosage: 1 GRAM
     Route: 048
     Dates: start: 20240611, end: 20240611
  7. LORAZEPAM [Suspect]
     Active Substance: LORAZEPAM
     Indication: Wrong patient received product
     Dosage: 2.5 MILLIGRAM
     Route: 048
     Dates: start: 20240611, end: 20240611

REACTIONS (2)
  - Wrong patient received product [Recovered/Resolved]
  - Somnolence [Recovered/Resolved]

NARRATIVE: CASE EVENT DATE: 20240611
